FAERS Safety Report 25064311 (Version 1)
Quarter: 2025Q1

REPORT INFORMATION
  Report Type: Spontaneous
  Country: US (occurrence: None)
  Receive Date: 20250311
  Receipt Date: 20250311
  Transmission Date: 20250409
  Serious: Yes (Death)
  Sender: FDA-CTU
  Company Number: None

PATIENT
  Age: 31 Year
  Sex: Male
  Weight: 63 kg

DRUGS (1)
  1. METHADONE [Suspect]
     Active Substance: METHADONE HYDROCHLORIDE
     Route: 048

REACTIONS (5)
  - Victim of crime [None]
  - Product administered from unauthorised provider [None]
  - Skin abrasion [None]
  - Legal problem [None]
  - Physical product label issue [None]

NARRATIVE: CASE EVENT DATE: 20240129
